FAERS Safety Report 4837824-2 (Version None)
Quarter: 2005Q4

REPORT INFORMATION
  Report Type: 
  Country: None (occurrence: None)
  Receive Date: 20051128
  Receipt Date: 20051117
  Transmission Date: 20060501
  Serious: Yes (Hospitalization, Other)
  Sender: FDA-Public Use
  Company Number: US-MERCK-0511USA03247

PATIENT
  Sex: Male
  Weight: 98 kg

DRUGS (12)
  1. VIOXX [Suspect]
     Indication: ARTHRITIS
     Route: 048
     Dates: start: 19980101, end: 20040101
  2. METFORMIN HYDROCHLORIDE [Concomitant]
     Route: 065
  3. TOPROL-XL [Concomitant]
     Route: 065
  4. HYDROCHLOROTHIAZIDE [Concomitant]
     Route: 065
  5. LIPITOR [Concomitant]
     Route: 065
  6. PIROXICAM [Concomitant]
     Route: 065
  7. BAYCOL [Concomitant]
     Route: 065
  8. CELEBREX [Concomitant]
     Route: 065
  9. ALTACE [Concomitant]
     Route: 065
  10. GLUCOPHAGE XR [Concomitant]
     Route: 065
  11. FOLGARD [Concomitant]
     Route: 065
  12. [THERAPY UNSPECIFIED] [Concomitant]
     Route: 065

REACTIONS (5)
  - ARTHROPATHY [None]
  - BLINDNESS UNILATERAL [None]
  - EYE HAEMORRHAGE [None]
  - HYPERTENSION [None]
  - MYOCARDIAL INFARCTION [None]
